FAERS Safety Report 18089700 (Version 1)
Quarter: 2020Q3

REPORT INFORMATION
  Report Type: Report from Study
  Country: TW (occurrence: TW)
  Receive Date: 20200729
  Receipt Date: 20200729
  Transmission Date: 20201103
  Serious: Yes (Hospitalization)
  Sender: FDA-Public Use
  Company Number: TW-JNJFOC-20200724665

PATIENT
  Age: 45 Year
  Sex: Female
  Weight: 55 kg

DRUGS (9)
  1. MEPHENOXALONE [Concomitant]
     Active Substance: MEPHENOXALONE
     Indication: ARTHRALGIA
  2. PROPRANOLOL [Concomitant]
     Active Substance: PROPRANOLOL HYDROCHLORIDE
     Indication: PALPITATIONS
     Route: 048
     Dates: start: 20190104
  3. MEPHENOXALONE [Concomitant]
     Active Substance: MEPHENOXALONE
     Indication: MYALGIA
     Route: 048
     Dates: start: 20200113
  4. DICLOFENAC [Concomitant]
     Active Substance: DICLOFENAC
     Indication: CONTUSION
     Route: 048
     Dates: start: 20190916
  5. DICLOFENAC [Concomitant]
     Active Substance: DICLOFENAC
     Indication: ARTHRALGIA
  6. ESKETAMINE [Suspect]
     Active Substance: ESKETAMINE
     Indication: DEPRESSION
     Dates: start: 20170628
  7. FLURBIPROFEN. [Concomitant]
     Active Substance: FLURBIPROFEN
     Indication: ARTHRALGIA
     Route: 061
     Dates: start: 20190215
  8. ESCITALOPRAM [Concomitant]
     Active Substance: ESCITALOPRAM OXALATE
     Indication: DEPRESSION
     Route: 048
     Dates: start: 20170628
  9. FLUNITRAZEPAM [Concomitant]
     Active Substance: FLUNITRAZEPAM
     Indication: SLEEP DISORDER
     Route: 048
     Dates: start: 20190422

REACTIONS (1)
  - Intervertebral disc protrusion [Recovered/Resolved]

NARRATIVE: CASE EVENT DATE: 20200523
